FAERS Safety Report 22028445 (Version 1)
Quarter: 2023Q1

REPORT INFORMATION
  Report Type: Spontaneous
  Country: US (occurrence: None)
  Receive Date: 20230223
  Receipt Date: 20230223
  Transmission Date: 20230417
  Serious: No
  Sender: FDA-Public Use
  Company Number: US-ROCHE-3099736

PATIENT
  Sex: Male

DRUGS (1)
  1. NUTROPIN AQ [Suspect]
     Active Substance: SOMATROPIN
     Indication: Growth hormone deficiency
     Dosage: THERAPY STATUS:  ONGOING: YES
     Route: 058
     Dates: start: 201805

REACTIONS (2)
  - Product dispensing error [Unknown]
  - No adverse event [Unknown]
